FAERS Safety Report 7641835-1 (Version None)
Quarter: 2011Q3

REPORT INFORMATION
  Report Type: 
  Country: None (occurrence: None)
  Receive Date: 20110728
  Receipt Date: 20110718
  Transmission Date: 20111222
  Serious: Yes (Other)
  Sender: FDA-Public Use
  Company Number: FR-ROCHE-790598

PATIENT
  Sex: Female
  Weight: 59 kg

DRUGS (13)
  1. CELLCEPT [Concomitant]
     Indication: PROPHYLAXIS AGAINST TRANSPLANT REJECTION
     Route: 048
     Dates: start: 20091027
  2. ATORVASTATIN CALCIUM [Concomitant]
     Dates: start: 19990203
  3. ROCALTROL [Concomitant]
     Indication: RENAL OSTEODYSTROPHY
     Dates: start: 20100421
  4. PREVISCAN [Concomitant]
     Dosage: FREQUENCY: 1.5 PER DAY
     Dates: start: 20110524
  5. UVEDOSE [Concomitant]
     Dosage: DOSE: 100000 UI
     Dates: start: 20110524
  6. METHOXY POLYETHYLENE GLYCOL-EPOETIN BETA [Suspect]
     Route: 042
     Dates: start: 20110126
  7. PREDNISOLONE [Concomitant]
     Indication: PROPHYLAXIS AGAINST TRANSPLANT REJECTION
     Route: 048
     Dates: start: 20100421
  8. TENORMIN [Concomitant]
     Dosage: FREQUENCY: 1.5 PER DAY
     Route: 048
     Dates: start: 20110420
  9. APROVEL [Concomitant]
     Dates: start: 20110524
  10. FOSAMAX [Concomitant]
     Indication: OSTEOPOROSIS
     Dates: start: 20060412
  11. PROGRAF [Concomitant]
     Indication: PROPHYLAXIS AGAINST TRANSPLANT REJECTION
     Route: 048
     Dates: start: 20101012
  12. RAMIPRIL [Concomitant]
     Route: 048
     Dates: start: 20110703
  13. FERROGRAD C [Concomitant]
     Dates: start: 20110126

REACTIONS (1)
  - GASTRIC ULCER [None]
